FAERS Safety Report 13383614 (Version 2)
Quarter: 2017Q2

REPORT INFORMATION
  Report Type: Report from Study
  Country: US (occurrence: US)
  Receive Date: 20170329
  Receipt Date: 20170403
  Transmission Date: 20170830
  Serious: Yes (Other)
  Sender: FDA-Public Use
  Company Number: US-PFIZER INC-2017127958

PATIENT
  Age: 8 Month
  Sex: Male

DRUGS (1)
  1. EPINEPHRINE. [Suspect]
     Active Substance: EPINEPHRINE
     Dosage: 2 MG, UNK
     Route: 042

REACTIONS (3)
  - Agitation [Unknown]
  - Incorrect product formulation administered [Unknown]
  - Tachycardia [Unknown]
